FAERS Safety Report 13006481 (Version 1)
Quarter: 2016Q4

REPORT INFORMATION
  Report Type: Spontaneous
  Country: AT (occurrence: AT)
  Receive Date: 20161207
  Receipt Date: 20161207
  Transmission Date: 20170207
  Serious: Yes (Other)
  Sender: FDA-Public Use
  Company Number: PHHY2013AT006245

PATIENT
  Age: 50 Year
  Sex: Female

DRUGS (5)
  1. SANDOSTATINE LAR [Suspect]
     Active Substance: OCTREOTIDE ACETATE
     Indication: CARCINOID TUMOUR
     Dosage: 30 MG, QMO (PER MONTH)
     Route: 065
     Dates: start: 199903
  2. SANDOSTATINE LAR [Suspect]
     Active Substance: OCTREOTIDE ACETATE
     Dosage: 30 MG, QMO (PER MONTH)
     Route: 065
     Dates: start: 200908
  3. SANDOSTATINE LAR [Suspect]
     Active Substance: OCTREOTIDE ACETATE
     Dosage: UNK, QMO
     Route: 065
     Dates: start: 2012
  4. KREON [Concomitant]
     Active Substance: PANCRELIPASE
     Indication: DIARRHOEA
     Dosage: 10 IU, UNK
     Route: 065
     Dates: start: 199903
  5. KREON [Concomitant]
     Active Substance: PANCRELIPASE
     Indication: FLUSHING

REACTIONS (12)
  - Cholecystitis chronic [Unknown]
  - Hepatic cirrhosis [Unknown]
  - Hypothyroidism [Unknown]
  - Nephrolithiasis [Unknown]
  - Subdiaphragmatic abscess [Unknown]
  - Abdominal pain upper [Recovered/Resolved]
  - Abdominal pain upper [Unknown]
  - Hepatic enzyme increased [Recovering/Resolving]
  - Diarrhoea [Unknown]
  - Gallbladder mucocoele [Unknown]
  - Gallbladder fibrosis [Unknown]
  - Cholelithiasis [Unknown]

NARRATIVE: CASE EVENT DATE: 200703
